FAERS Safety Report 25808211 (Version 1)
Quarter: 2025Q3

REPORT INFORMATION
  Report Type: Spontaneous
  Country: BR (occurrence: BR)
  Receive Date: 20250916
  Receipt Date: 20250916
  Transmission Date: 20251021
  Serious: Yes (Hospitalization, Other)
  Sender: NOVO NORDISK
  Company Number: BR-NOVOPROD-1519572

PATIENT
  Age: 47 Year
  Sex: Female

DRUGS (3)
  1. WEGOVY [Suspect]
     Active Substance: SEMAGLUTIDE
     Indication: Product used for unknown indication
  2. WEGOVY [Suspect]
     Active Substance: SEMAGLUTIDE
     Dates: start: 20250901
  3. WEGOVY [Suspect]
     Active Substance: SEMAGLUTIDE

REACTIONS (9)
  - Dehydration [Unknown]
  - Herpes virus infection [Unknown]
  - Vulvovaginal candidiasis [Unknown]
  - Near death experience [Unknown]
  - Nausea [Unknown]
  - Vomiting [Unknown]
  - Abdominal pain [Unknown]
  - Asthenia [Unknown]
  - Product quality issue [Unknown]

NARRATIVE: CASE EVENT DATE: 20250901
